FAERS Safety Report 10393986 (Version 2)
Quarter: 2014Q4

REPORT INFORMATION
  Report Type: Spontaneous
  Country: CA (occurrence: CA)
  Receive Date: 20140819
  Receipt Date: 20141216
  Transmission Date: 20150528
  Serious: Yes (Hospitalization, Other)
  Sender: FDA-Public Use
  Company Number: CA-PFIZER INC-2014228127

PATIENT
  Age: 57 Year
  Sex: Male

DRUGS (2)
  1. HYDROCORTISONE. [Suspect]
     Active Substance: HYDROCORTISONE
     Indication: PSORIASIS
     Dosage: 1 %, UNK
     Route: 061
  2. DOVONEX [Concomitant]
     Active Substance: CALCIPOTRIENE
     Dosage: UNK

REACTIONS (11)
  - Mouth ulceration [Recovered/Resolved]
  - Rash pruritic [Recovered/Resolved]
  - Scab [Recovered/Resolved]
  - Skin oedema [Recovered/Resolved]
  - Anaemia macrocytic [Recovered/Resolved]
  - Hepatic enzyme increased [Recovered/Resolved]
  - Ascites [Recovered/Resolved]
  - Blood albumin decreased [Recovered/Resolved]
  - Eschar [Recovered/Resolved]
  - Trichophytosis [Recovered/Resolved]
  - Tinea infection [Recovered/Resolved]
